FAERS Safety Report 19460077 (Version 2)
Quarter: 2021Q4

REPORT INFORMATION
  Report Type: Spontaneous
  Country: GB (occurrence: GB)
  Receive Date: 20210625
  Receipt Date: 20211014
  Transmission Date: 20220303
  Serious: Yes (Other)
  Sender: FDA-Public Use
  Company Number: GB-JNJFOC-20210503087

PATIENT
  Age: 73 Year
  Sex: Female

DRUGS (2)
  1. PREGABALIN [Suspect]
     Active Substance: PREGABALIN
     Indication: Product used for unknown indication
     Dosage: UNK
     Route: 065
  2. STELARA [Suspect]
     Active Substance: USTEKINUMAB
     Indication: Crohn^s disease
     Dosage: 90 MILLIGRAM, BID
     Route: 058

REACTIONS (3)
  - Carpal tunnel decompression [Recovered/Resolved]
  - Nasopharyngitis [Unknown]
  - Alopecia [Unknown]

NARRATIVE: CASE EVENT DATE: 20210713
